FAERS Safety Report 16014081 (Version 1)
Quarter: 2019Q1

REPORT INFORMATION
  Report Type: Spontaneous
  Country: CA (occurrence: CA)
  Receive Date: 20190227
  Receipt Date: 20190227
  Transmission Date: 20190418
  Serious: Yes (Other)
  Sender: FDA-Public Use
  Company Number: CA-PFIZER INC-2019083796

PATIENT
  Age: 62 Year
  Sex: Female

DRUGS (2)
  1. CEFTRIAXONE SODIUM. [Suspect]
     Active Substance: CEFTRIAXONE SODIUM
     Indication: ABSCESS
     Dosage: UNK
  2. CEFTRIAXONE SODIUM. [Suspect]
     Active Substance: CEFTRIAXONE SODIUM
     Indication: CELLULITIS
     Dosage: 2 G, SINGLE (TOTAL)
     Route: 042

REACTIONS (5)
  - Lip swelling [Unknown]
  - Pruritus [Unknown]
  - Infusion related reaction [Unknown]
  - Urticaria [Unknown]
  - Periorbital oedema [Unknown]
